FAERS Safety Report 7084336-4 (Version None)
Quarter: 2010Q4

REPORT INFORMATION
  Report Type: 
  Country: None (occurrence: None)
  Receive Date: 20101104
  Receipt Date: 20101029
  Transmission Date: 20110411
  Serious: Yes (Hospitalization)
  Sender: FDA-Public Use
  Company Number: FR-PFIZER INC-2008022693

PATIENT
  Age: 77 Year
  Sex: Male

DRUGS (13)
  1. BLINDED *NO SUBJECT DRUG [Suspect]
     Indication: CARDIAC FAILURE
     Dosage: 25 MG, ALTERNATE DAY
     Route: 048
     Dates: start: 20071207, end: 20080207
  2. BLINDED *PLACEBO [Suspect]
     Indication: CARDIAC FAILURE
     Dosage: 25 MG, ALTERNATE DAY
     Route: 048
     Dates: start: 20071207, end: 20080207
  3. BLINDED EPLERENONE [Suspect]
     Indication: CARDIAC FAILURE
     Dosage: 25 MG, ALTERNATE DAY
     Route: 048
     Dates: start: 20071207, end: 20080207
  4. FUROSEMIDE [Concomitant]
     Route: 048
     Dates: start: 20071211
  5. CANDESARTAN CILEXETIL [Concomitant]
     Route: 048
     Dates: start: 20070810
  6. BISOPROLOL [Concomitant]
     Route: 048
     Dates: start: 20070810
  7. AMLODIPINE [Concomitant]
     Route: 048
     Dates: start: 20060227
  8. NICORANDIL [Concomitant]
     Route: 048
     Dates: start: 20060227
  9. ATORVASTATIN CALCIUM [Concomitant]
     Route: 048
     Dates: start: 20071119, end: 20080212
  10. KARDEGIC [Concomitant]
     Route: 048
     Dates: start: 20070810
  11. GLIBENCLAMIDE [Concomitant]
     Route: 048
     Dates: start: 20071119, end: 20080207
  12. MEPROBAMATE [Concomitant]
     Route: 048
     Dates: start: 20070810
  13. DEPAKENE [Concomitant]
     Route: 048
     Dates: start: 20070810

REACTIONS (2)
  - HYPOGLYCAEMIA [None]
  - RENAL FAILURE [None]
